FAERS Safety Report 8593625 (Version 2)
Quarter: 2012Q4

REPORT INFORMATION
  Report Type: 
  Country: US (occurrence: US)
  Receive Date: 20120604
  Receipt Date: 20120830
  Transmission Date: 20130627
  Serious: Yes (Hospitalization)
  Sender: FDA-Public Use
  Company Number: US-BAYER-2012-053815

PATIENT
  Age: 22 Year
  Sex: Female
  Weight: 63.49 kg

DRUGS (2)
  1. YASMIN [Suspect]
     Indication: PREMENSTRUAL SYNDROME
     Dosage: UNK
     Dates: start: 200407, end: 200503
  2. YASMIN [Suspect]
     Indication: ACNE

REACTIONS (14)
  - Deep vein thrombosis [None]
  - Varicose vein [None]
  - Pain [None]
  - Pain in extremity [None]
  - Oedema peripheral [None]
  - Injury [None]
  - General physical health deterioration [None]
  - Scar [None]
  - Anxiety [None]
  - Depression [None]
  - Emotional distress [None]
  - Pain [None]
  - Anhedonia [None]
  - Anxiety [None]
